FAERS Safety Report 6472722-2 (Version None)
Quarter: 2009Q4

REPORT INFORMATION
  Report Type: 
  Country: None (occurrence: None)
  Receive Date: 20091203
  Receipt Date: 20081212
  Transmission Date: 20100525
  Serious: No
  Sender: FDA-Public Use
  Company Number: US-AMGEN-KDL323771

PATIENT
  Sex: Female

DRUGS (1)
  1. ENBREL [Suspect]
     Indication: PSORIASIS
     Route: 058
     Dates: start: 20030908

REACTIONS (5)
  - CHEST PAIN [None]
  - COUGH [None]
  - LUNG DISORDER [None]
  - PAIN [None]
  - PARAESTHESIA [None]
